FAERS Safety Report 8746931 (Version 2)
Quarter: 2012Q4

REPORT INFORMATION
  Report Type: 
  Country: US (occurrence: US)
  Receive Date: 20120827
  Receipt Date: 20120924
  Transmission Date: 20130627
  Serious: Yes (Other)
  Sender: FDA-Public Use
  Company Number: PHEH2012US016611

PATIENT
  Sex: Female
  Weight: 65.77 kg

DRUGS (1)
  1. GILENYA [Suspect]
     Indication: MULTIPLE SCLEROSIS
     Dosage: 0.5 mg, QD
     Route: 048

REACTIONS (3)
  - Neuritis [Unknown]
  - Neuralgia [Unknown]
  - Oedema peripheral [Unknown]
